FAERS Safety Report 7405329-0 (Version None)
Quarter: 2011Q2

REPORT INFORMATION
  Report Type: 
  Country: None (occurrence: None)
  Receive Date: 20110411
  Receipt Date: 20110404
  Transmission Date: 20111010
  Serious: Yes (Hospitalization, Disabling)
  Sender: FDA-Public Use
  Company Number: PHFR2011GB02396

PATIENT
  Age: 70 Year
  Sex: Female
  Weight: 47.62 kg

DRUGS (3)
  1. MADOPAR [Concomitant]
  2. MIRAPEXIN [Concomitant]
  3. ENTACAPONE [Suspect]
     Indication: PARKINSON'S DISEASE
     Dosage: 200 MG, UNK
     Route: 048
     Dates: start: 20101115

REACTIONS (2)
  - DEHYDRATION [None]
  - INFLAMMATORY BOWEL DISEASE [None]
